FAERS Safety Report 7965038-6 (Version None)
Quarter: 2011Q4

REPORT INFORMATION
  Report Type: 
  Country: None (occurrence: None)
  Receive Date: 20111208
  Receipt Date: 20111206
  Transmission Date: 20120403
  Serious: Yes (Disabling, Other)
  Sender: FDA-Public Use
  Company Number: US-AMGEN-USASP2011059292

PATIENT
  Age: 65 Year
  Sex: Male
  Weight: 89.8 kg

DRUGS (6)
  1. ACETAMINOPHEN [Concomitant]
     Dosage: 650 MG, UNK
     Route: 048
     Dates: start: 20110701
  2. NPLATE [Suspect]
     Indication: IDIOPATHIC THROMBOCYTOPENIC PURPURA
  3. DIPHENHYDRAMINE HCL [Concomitant]
     Dosage: 25 MG, UNK
     Dates: start: 20110701
  4. NPLATE [Suspect]
     Indication: THROMBOCYTOPENIC PURPURA
     Dosage: 525 MUG, QWK
     Route: 058
     Dates: start: 20110623, end: 20111020
  5. IGG [Concomitant]
     Dosage: 80 MG, UNK
     Dates: start: 20110701
  6. PREDNISONE TAB [Concomitant]
     Dosage: UNK
     Dates: end: 20111013

REACTIONS (7)
  - WALKING AID USER [None]
  - DEEP VEIN THROMBOSIS [None]
  - PAIN IN EXTREMITY [None]
  - NEUROPATHY PERIPHERAL [None]
  - ABASIA [None]
  - TOXIC NEUROPATHY [None]
  - PERONEAL NERVE PALSY [None]
